FAERS Safety Report 9330755 (Version 1)
Quarter: 2013Q2

REPORT INFORMATION
  Report Type: Spontaneous
  Country: US (occurrence: None)
  Receive Date: 20130604
  Receipt Date: 20130604
  Transmission Date: 20140414
  Serious: Yes (Hospitalization)
  Sender: FDA-Public Use
  Company Number: None

PATIENT
  Age: 79 Year
  Sex: Male
  Weight: 94 kg

DRUGS (1)
  1. LISINOPRIL/HCTZ [Suspect]
     Indication: HYPERTENSION
     Dosage: 20-12.5, GREAT THAN 1 YR PER PT
     Route: 048

REACTIONS (2)
  - Angioedema [None]
  - Local swelling [None]
